FAERS Safety Report 8936785 (Version 4)
Quarter: 2013Q1

REPORT INFORMATION
  Report Type: Spontaneous
  Country: US (occurrence: US)
  Receive Date: 20121130
  Receipt Date: 20130111
  Transmission Date: 20140127
  Serious: No
  Sender: FDA-Public Use
  Company Number: US-PFIZER INC-2012298061

PATIENT
  Age: 68 Year
  Sex: Male
  Weight: 69.39 kg

DRUGS (6)
  1. VIAGRA [Suspect]
     Indication: ERECTILE DYSFUNCTION
     Dosage: 100 MG, AS NEEDED
     Route: 048
     Dates: start: 2001
  2. VIAGRA [Suspect]
     Dosage: 100 MG, 1X/DAY
     Route: 048
  3. AMBIEN CR [Concomitant]
     Dosage: 25 MG, EVERY NIGHT (QHS)
  4. CEFDINIR [Concomitant]
     Dosage: 300 MG, 2X/DAY
     Route: 048
  5. LIPITOR [Concomitant]
     Dosage: 40 MG, UNK
     Route: 048
  6. NEXIUM [Concomitant]
     Dosage: 40 MG, 1X/DAY
     Route: 048

REACTIONS (2)
  - Drug ineffective [Unknown]
  - Orgasm abnormal [Unknown]
